FAERS Safety Report 7416885-0 (Version None)
Quarter: 2011Q2

REPORT INFORMATION
  Report Type: 
  Country: None (occurrence: None)
  Receive Date: 20110415
  Receipt Date: 20110405
  Transmission Date: 20111010
  Serious: Yes (Other)
  Sender: FDA-Public Use
  Company Number: US-JNJFOC-20110403220

PATIENT
  Sex: Female
  Weight: 48.08 kg

DRUGS (4)
  1. DURAGESIC [Suspect]
     Indication: PAIN
     Route: 062
  2. FENTANYL CITRATE [Suspect]
     Indication: PAIN
     Route: 062
  3. FENTANYL-100 [Suspect]
     Indication: PAIN
     Route: 062
  4. SKELAXIN [Suspect]
     Indication: BREAKTHROUGH PAIN
     Route: 065

REACTIONS (4)
  - MENTAL IMPAIRMENT [None]
  - DRUG INEFFECTIVE [None]
  - HANGOVER [None]
  - FEELING ABNORMAL [None]
